FAERS Safety Report 10511804 (Version 1)
Quarter: 2014Q4

REPORT INFORMATION
  Report Type: Spontaneous
  Country: US (occurrence: US)
  Receive Date: 20141010
  Receipt Date: 20141010
  Transmission Date: 20150528
  Serious: No
  Sender: FDA-Public Use
  Company Number: US-ASTRAZENECA-2014SE72900

PATIENT
  Age: 84 Year
  Sex: Female

DRUGS (1)
  1. CRESTOR [Suspect]
     Active Substance: ROSUVASTATIN CALCIUM
     Route: 048

REACTIONS (5)
  - Myalgia [Recovering/Resolving]
  - Blood cholesterol increased [Unknown]
  - Malaise [Unknown]
  - Arthritis [Unknown]
  - Nausea [Recovering/Resolving]
